FAERS Safety Report 8798347 (Version 1)
Quarter: 2012Q4

REPORT INFORMATION
  Report Type: Spontaneous
  Country: US (occurrence: None)
  Receive Date: 20120913
  Receipt Date: 20120913
  Transmission Date: 20130627
  Serious: Yes (Hospitalization)
  Sender: FDA-Public Use
  Company Number: IMP_05975_2012

PATIENT
  Age: 44 Year
  Sex: Female

DRUGS (3)
  1. CLONIDINE [Suspect]
     Indication: HYPERTENSION
     Dosage: 0.3  mg   1X/WEEK, [PATCH] TRANSDERMAL)
     Route: 023
  2. HYDROCHLOROTHIAZIDE [Concomitant]
  3. SIMVASTATIN [Concomitant]

REACTIONS (8)
  - Vomiting [None]
  - Fatigue [None]
  - Dizziness [None]
  - Chest discomfort [None]
  - Coronary artery stenosis [None]
  - Coronary artery occlusion [None]
  - Coronary artery dissection [None]
  - Haemorrhage coronary artery [None]
